FAERS Safety Report 19824345 (Version 1)
Quarter: 2021Q3

REPORT INFORMATION
  Report Type: Spontaneous
  Country: US (occurrence: US)
  Receive Date: 20210909
  Receipt Date: 20210909
  Transmission Date: 20211014
  Serious: Yes (Hospitalization)
  Sender: FDA-Public Use
  Company Number: None

PATIENT
  Age: 56 Year
  Sex: Female
  Weight: 113.2 kg

DRUGS (33)
  1. NORVASC [Concomitant]
     Active Substance: AMLODIPINE BESYLATE
  2. VITAMIN D3 [Concomitant]
     Active Substance: CHOLECALCIFEROL
  3. COLACE [Concomitant]
     Active Substance: DOCUSATE SODIUM
  4. PRILOSEC [Concomitant]
     Active Substance: OMEPRAZOLE MAGNESIUM
  5. ZOFRAN [Concomitant]
     Active Substance: ONDANSETRON HYDROCHLORIDE
  6. PRAVASTATIN. [Concomitant]
     Active Substance: PRAVASTATIN
  7. PROGRAF [Concomitant]
     Active Substance: TACROLIMUS
  8. ATORVASTATIN [Concomitant]
     Active Substance: ATORVASTATIN
  9. CARDENE [Concomitant]
     Active Substance: NICARDIPINE HYDROCHLORIDE
  10. PLAQUENIL [Concomitant]
     Active Substance: HYDROXYCHLOROQUINE SULFATE
  11. ASPIRIN. [Concomitant]
     Active Substance: ASPIRIN
  12. DAPSONE. [Concomitant]
     Active Substance: DAPSONE
  13. METOCLOPRAMIDE NITROGLYCERIN [Concomitant]
  14. FAMOTIDINE. [Concomitant]
     Active Substance: FAMOTIDINE
  15. PROBIOTIC [Concomitant]
     Active Substance: PROBIOTICS NOS
  16. MAGOX [Concomitant]
  17. PYRIDOXINE [Concomitant]
     Active Substance: PYRIDOXINE
  18. CINACALCET. [Concomitant]
     Active Substance: CINACALCET
  19. NORCO [Concomitant]
     Active Substance: ACETAMINOPHEN\HYDROCODONE BITARTRATE
  20. BASAGLAR [Concomitant]
     Active Substance: INSULIN GLARGINE
  21. MAVYRET [Suspect]
     Active Substance: GLECAPREVIR\PIBRENTASVIR
     Indication: HEPATITIS C
     Dosage: 3 TABLETS ONCE DAILY BY MOUTH
     Route: 048
     Dates: start: 20200415, end: 20200710
  22. VALGANCICLOVIR. [Concomitant]
     Active Substance: VALGANCICLOVIR
  23. XANAX [Concomitant]
     Active Substance: ALPRAZOLAM
  24. FUROSEMIDE. [Concomitant]
     Active Substance: FUROSEMIDE
  25. CARVEDILOL. [Concomitant]
     Active Substance: CARVEDILOL
  26. LYRICA [Concomitant]
     Active Substance: PREGABALIN
  27. VITAMIN B [Concomitant]
     Active Substance: VITAMIN B
  28. ACETAMINOPHEN. [Concomitant]
     Active Substance: ACETAMINOPHEN
  29. KLONOPIN [Concomitant]
     Active Substance: CLONAZEPAM
  30. LANTUS [Concomitant]
     Active Substance: INSULIN GLARGINE
  31. POLYETHYLENE GLYCOL [Concomitant]
     Active Substance: POLYETHYLENE GLYCOLS
  32. SEVELAMER [Concomitant]
     Active Substance: SEVELAMER
  33. TRAMADOL. [Concomitant]
     Active Substance: TRAMADOL

REACTIONS (4)
  - Dialysis [None]
  - Kidney transplant rejection [None]
  - Anaemia [None]
  - Fluid overload [None]

NARRATIVE: CASE EVENT DATE: 20200416
